FAERS Safety Report 8363139-4 (Version None)
Quarter: 2012Q2

REPORT INFORMATION
  Report Type: 
  Country: None (occurrence: None)
  Receive Date: 20120516
  Receipt Date: 20120509
  Transmission Date: 20120825
  Serious: Yes (Hospitalization)
  Sender: FDA-Public Use
  Company Number: GB-BAYER-2012-045556

PATIENT
  Age: 60 Year
  Sex: Female

DRUGS (6)
  1. SORAFENIB (RAF KINASE INHIBITOR) [Suspect]
     Dosage: UNK
  2. RAMIPRIL [Concomitant]
     Dosage: NOT TAKEN AT TIME OF SAE
     Route: 048
  3. OMEPRAZOLE [Concomitant]
     Dosage: DAILY DOSE: 20 MG
     Route: 048
  4. SORAFENIB (RAF KINASE INHIBITOR) [Suspect]
     Indication: RENAL CELL CARCINOMA
     Dosage: 400 MG, QD
     Route: 048
     Dates: start: 20110609, end: 20120427
  5. LEVOTHYROXINE SODIUM [Concomitant]
     Dosage: DAILY DOSE: 50 MCG
     Route: 048
  6. SORAFENIB (RAF KINASE INHIBITOR) [Suspect]
     Dosage: UNK

REACTIONS (5)
  - CONVULSION [None]
  - HYPOPHOSPHATAEMIA [None]
  - HYPOMAGNESAEMIA [None]
  - HYPOCALCAEMIA [None]
  - VERTEBRAL WEDGING [None]
